FAERS Safety Report 13191434 (Version 1)
Quarter: 2017Q1

REPORT INFORMATION
  Report Type: Spontaneous
  Country: ES (occurrence: ES)
  Receive Date: 20170207
  Receipt Date: 20170207
  Transmission Date: 20170428
  Serious: Yes (Hospitalization)
  Sender: FDA-Public Use
  Company Number: ES-ROCHE-1889850

PATIENT
  Sex: Male
  Weight: 68 kg

DRUGS (1)
  1. MABTHERA [Suspect]
     Active Substance: RITUXIMAB
     Indication: NON-HODGKIN^S LYMPHOMA
     Route: 042
     Dates: start: 201607, end: 20160730

REACTIONS (1)
  - Non-cardiogenic pulmonary oedema [Recovered/Resolved]

NARRATIVE: CASE EVENT DATE: 20160730
